FAERS Safety Report 25516987 (Version 2)
Quarter: 2025Q3

REPORT INFORMATION
  Report Type: Spontaneous
  Country: EU (occurrence: EU)
  Receive Date: 20250704
  Receipt Date: 20250816
  Transmission Date: 20251021
  Serious: Yes (Hospitalization, Other)
  Sender: AUROBINDO
  Company Number: EU-AFSSAPS-AVCN2025000433

PATIENT
  Age: 44 Year
  Sex: Male

DRUGS (2)
  1. TRAMADOL [Suspect]
     Active Substance: TRAMADOL
     Indication: Product used for unknown indication
     Route: 048
     Dates: start: 2005
  2. TOBACCO LEAF [Suspect]
     Active Substance: TOBACCO LEAF
     Indication: Product used for unknown indication

REACTIONS (8)
  - Dysuria [Not Recovered/Not Resolved]
  - Hypokalaemia [Recovered/Resolved]
  - Memory impairment [Unknown]
  - Respiratory disorder [Recovering/Resolving]
  - Cognitive disorder [Recovering/Resolving]
  - Asthenia [Recovering/Resolving]
  - Drug abuse [Not Recovered/Not Resolved]
  - Drug withdrawal syndrome [Recovered/Resolved]

NARRATIVE: CASE EVENT DATE: 20050101
